FAERS Safety Report 24280280 (Version 1)
Quarter: 2024Q3

REPORT INFORMATION
  Report Type: Spontaneous
  Country: FR (occurrence: FR)
  Receive Date: 20240904
  Receipt Date: 20240904
  Transmission Date: 20241017
  Serious: Yes (Life-Threatening, Hospitalization)
  Sender: CHEPLAPHARM
  Company Number: None

PATIENT
  Age: 59 Year
  Sex: Male

DRUGS (4)
  1. CLONAZEPAM [Suspect]
     Active Substance: CLONAZEPAM
  2. MIDAZOLAM [Suspect]
     Active Substance: MIDAZOLAM
  3. NORDAZEPAM [Suspect]
     Active Substance: NORDAZEPAM
  4. CANNABIS SATIVA SUBSP. INDICA TOP [Suspect]
     Active Substance: CANNABIS SATIVA SUBSP. INDICA TOP

REACTIONS (7)
  - Bradycardia [Recovered/Resolved]
  - Coma [Recovered/Resolved]
  - Bradypnoea [Recovered/Resolved]
  - Drug use disorder [Unknown]
  - Hypothermia [Recovered/Resolved]
  - Miosis [Recovered/Resolved]
  - Haemophilus infection [Unknown]

NARRATIVE: CASE EVENT DATE: 20240214
